FAERS Safety Report 24432482 (Version 1)
Quarter: 2024Q4

REPORT INFORMATION
  Report Type: Spontaneous
  Country: PL (occurrence: PL)
  Receive Date: 20241014
  Receipt Date: 20241014
  Transmission Date: 20250115
  Serious: Yes (Life-Threatening)
  Sender: TEVA
  Company Number: None

PATIENT
  Age: 25 Year
  Sex: Male

DRUGS (1)
  1. METFORMIN HYDROCHLORIDE [Suspect]
     Active Substance: METFORMIN HYDROCHLORIDE
     Indication: Product used for unknown indication
     Dosage: METFORMAX 1000
     Route: 048
     Dates: start: 20201204, end: 20201204

REACTIONS (3)
  - Circulatory collapse [Unknown]
  - Lactic acidosis [Unknown]
  - Renal failure [Unknown]

NARRATIVE: CASE EVENT DATE: 20201204
